FAERS Safety Report 4789525-7 (Version None)
Quarter: 2005Q4

REPORT INFORMATION
  Report Type: 
  Country: None (occurrence: None)
  Receive Date: 20051005
  Receipt Date: 20051005
  Transmission Date: 20060501
  Serious: Yes (Life-Threatening, Hospitalization)
  Sender: FDA-Public Use
  Company Number: None

PATIENT
  Age: 79 Year

DRUGS (4)
  1. WARFARIN [Suspect]
     Indication: THROMBOSIS PROPHYLAXIS
     Dosage: 2.5 MG PO QD
     Route: 048
  2. ASPIRIN [Suspect]
     Indication: THROMBOSIS PROPHYLAXIS
     Dosage: 81 MG PO QD
     Route: 048
  3. HYDROCHLOROTHIAZIDE [Concomitant]
  4. ATORVASTATIN [Concomitant]

REACTIONS (2)
  - HAEMORRHAGE [None]
  - RECTAL HAEMORRHAGE [None]
